FAERS Safety Report 9738753 (Version 4)
Quarter: 2013Q4

REPORT INFORMATION
  Report Type: Spontaneous
  Country: JP (occurrence: JP)
  Receive Date: 20131209
  Receipt Date: 20131229
  Transmission Date: 20140711
  Serious: Yes (Life-Threatening)
  Sender: FDA-Public Use
  Company Number: JP-ROCHE-1315700

PATIENT
  Age: 93 Year
  Sex: Female
  Weight: 32 kg

DRUGS (2)
  1. ROCEPHIN [Suspect]
     Indication: PNEUMONIA
     Dosage: DOSAGE IS UNCERTAIN.
     Route: 041
     Dates: start: 20131108, end: 20131121
  2. NEOLAMIN 3 B INJECTION [Concomitant]
     Indication: VITAMIN SUPPLEMENTATION
     Route: 041
     Dates: start: 20131108

REACTIONS (3)
  - Liver disorder [Recovering/Resolving]
  - Cholelithiasis [Unknown]
  - Cholecystitis acute [Recovering/Resolving]
